FAERS Safety Report 11953422 (Version 1)
Quarter: 2016Q1

REPORT INFORMATION
  Report Type: Spontaneous
  Country: BR (occurrence: BR)
  Receive Date: 20160126
  Receipt Date: 20160126
  Transmission Date: 20160526
  Serious: Yes (Death, Hospitalization, Other)
  Sender: FDA-Public Use
  Company Number: BR-JNJFOC-20160118350

PATIENT
  Sex: Male

DRUGS (1)
  1. REMICADE [Suspect]
     Active Substance: INFLIXIMAB
     Indication: PSORIASIS
     Route: 042
     Dates: start: 2013

REACTIONS (5)
  - Lung disorder [Fatal]
  - Thrombosis [Unknown]
  - Cerebrovascular accident [Fatal]
  - Cardiac disorder [Unknown]
  - Fall [Fatal]

NARRATIVE: CASE EVENT DATE: 2015
